FAERS Safety Report 4266043-6 (Version None)
Quarter: 2004Q1

REPORT INFORMATION
  Report Type: 
  Country: None (occurrence: None)
  Receive Date: 20040106
  Receipt Date: 20031223
  Transmission Date: 20041129
  Serious: Yes (Other)
  Sender: FDA-Public Use
  Company Number: 200323101GDDC

PATIENT
  Age: 92 Year
  Sex: Female

DRUGS (8)
  1. FEXOFENADINE [Suspect]
     Dosage: 180 MG/DAY PO
     Route: 048
     Dates: start: 20030801, end: 20031001
  2. CARVEDILOL [Concomitant]
  3. RISEDRONATE SODIUM (ACTONEL) [Concomitant]
  4. COLECALCIFEROL, CALCIUM CARBONATE (CALCICHEW D3) [Concomitant]
  5. ASPIRIN [Concomitant]
  6. DIGOXIN [Concomitant]
  7. PERINDOPRIL [Concomitant]
  8. FUROSEMIDE [Concomitant]

REACTIONS (2)
  - NEURITIS [None]
  - VISION BLURRED [None]
